FAERS Safety Report 8379625-7 (Version None)
Quarter: 2012Q2

REPORT INFORMATION
  Report Type: 
  Country: None (occurrence: None)
  Receive Date: 20120523
  Receipt Date: 20120521
  Transmission Date: 20120825
  Serious: Yes (Other)
  Sender: FDA-Public Use
  Company Number: PHEH2012US008404

PATIENT
  Sex: Female

DRUGS (2)
  1. TEGRETOL [Suspect]
     Dosage: 800 MG, QD
  2. CARBAMAZEPINE [Suspect]
     Dosage: UNK

REACTIONS (1)
  - GRAND MAL CONVULSION [None]
